FAERS Safety Report 8542435-1 (Version None)
Quarter: 2012Q3

REPORT INFORMATION
  Report Type: 
  Country: None (occurrence: None)
  Receive Date: 20120726
  Receipt Date: 20110922
  Transmission Date: 20120928
  Serious: Yes (Other)
  Sender: FDA-Public Use
  Company Number: US-ASTRAZENECA-2005UW00419

PATIENT
  Age: 64 Year
  Sex: Female
  Weight: 74.8 kg

DRUGS (10)
  1. SERTRALINE HYDROCHLORIDE [Concomitant]
  2. SEROQUEL [Suspect]
     Indication: HALLUCINATION, AUDITORY
     Route: 048
     Dates: start: 20040801
  3. SEROQUEL [Suspect]
     Dosage: 200 MG IN THE MORNING, 400 MG AT AFTERNOON
     Route: 048
     Dates: start: 20040101
  4. SEROQUEL [Suspect]
     Dosage: 200 MG IN THE MORNING, 400 MG AT AFTERNOON
     Route: 048
     Dates: start: 20040101
  5. SEROQUEL [Suspect]
     Indication: SCHIZOPHRENIA
     Route: 048
     Dates: start: 20040801
  6. PAXIL [Concomitant]
     Route: 048
  7. IBUPROFEN [Concomitant]
  8. RISPERDAL [Concomitant]
     Indication: SEDATION
     Route: 048
  9. ZOLOFT [Concomitant]
     Indication: DEPRESSION
  10. VITAMIN TAB [Concomitant]

REACTIONS (14)
  - INSOMNIA [None]
  - DRY MOUTH [None]
  - INCREASED APPETITE [None]
  - MUSCLE SPASMS [None]
  - MUSCLE TWITCHING [None]
  - CONVULSION [None]
  - DEPRESSION [None]
  - SKIN DISCOLOURATION [None]
  - ORTHOSTATIC HYPOTENSION [None]
  - WEIGHT INCREASED [None]
  - SOMNOLENCE [None]
  - CONSTIPATION [None]
  - FEAR [None]
  - DIZZINESS [None]
